FAERS Safety Report 9416744 (Version 1)
Quarter: 2013Q3

REPORT INFORMATION
  Report Type: Spontaneous
  Country: CA (occurrence: None)
  Receive Date: 20130719
  Receipt Date: 20130719
  Transmission Date: 20140515
  Serious: Yes (Other)
  Sender: FDA-Public Use
  Company Number: 2013AP006649

PATIENT
  Age: 77 Year
  Sex: Male

DRUGS (12)
  1. FUROSEMIDE (FUROSEMIDE) [Suspect]
     Indication: RIGHT VENTRICULAR FAILURE
     Route: 042
  2. FUROSEMIDE [Concomitant]
  3. CHMEOTHERAPUETICS (CHEMOTHERAPEUTICS) [Concomitant]
  4. ASPIRIN (ACETYLSALCYLIC ACID) [Concomitant]
  5. CLOPIDOGREL (CLOPIDOGREL) [Concomitant]
  6. ATORVASTATIN (ATORVASTATIN) [Concomitant]
  7. FLUTICASONE PROPIONATE W. SALMETEROL (FLUTICASONE PROPIONATE W. SALMETEROL) [Concomitant]
  8. TIOTROPIUM BROMIDE M(IOTROPIUM BROMIDE) [Concomitant]
  9. ACETYLCYSTEINE (ACETYLCYSTEINE) [Concomitant]
  10. DOMPERIDONE (DOMPERIDONE) [Concomitant]
  11. REVATIO (SILDENAFIL CITRATE) (UNKNOWN) (SILDENAFIL) [Suspect]
     Indication: PULMONARY HYPERTENSION
     Route: 048
  12. DILTIAZEM [Suspect]
     Indication: PRODUCT USED FOR UNKNOWN INDICATION
     Route: 048

REACTIONS (3)
  - Deafness bilateral [None]
  - Drug interaction [None]
  - Tinnitus [None]
